FAERS Safety Report 5683154-9 (Version None)
Quarter: 2008Q1

REPORT INFORMATION
  Report Type: 
  Country: None (occurrence: None)
  Receive Date: 20080327
  Receipt Date: 20080317
  Transmission Date: 20080703
  Serious: Yes (Other)
  Sender: FDA-Public Use
  Company Number: US-AMGEN-STX270069

PATIENT
  Sex: Female

DRUGS (1)
  1. ENBREL [Suspect]
     Indication: RHEUMATOID ARTHRITIS
     Route: 058
     Dates: start: 20070301

REACTIONS (5)
  - BRONCHIECTASIS [None]
  - HAEMOPTYSIS [None]
  - PULMONARY CAVITATION [None]
  - RASH ERYTHEMATOUS [None]
  - SCIATICA [None]
